FAERS Safety Report 5349036-7 (Version None)
Quarter: 2007Q2

REPORT INFORMATION
  Report Type: 
  Country: None (occurrence: None)
  Receive Date: 20070516
  Receipt Date: 20070326
  Transmission Date: 20071010
  Serious: No
  Sender: FDA-Public Use
  Company Number: 200712139US

PATIENT
  Sex: Male

DRUGS (3)
  1. APIDRA [Suspect]
     Dates: start: 20061001
  2. OPTICLIK [Suspect]
     Dates: start: 20061001
  3. INSULIN [Concomitant]

REACTIONS (1)
  - BLOOD GLUCOSE DECREASED [None]
